FAERS Safety Report 4544656-1 (Version None)
Quarter: 2004Q4

REPORT INFORMATION
  Report Type: 
  Country: None (occurrence: None)
  Receive Date: 20041230
  Receipt Date: 20041220
  Transmission Date: 20050328
  Serious: Yes (Hospitalization)
  Sender: FDA-Public Use
  Company Number: 2004UW16888

PATIENT
  Age: 75 Year
  Sex: Male
  Weight: 72.5755 kg

DRUGS (4)
  1. CRESTOR [Suspect]
     Indication: BLOOD CHOLESTEROL INCREASED
     Dosage: 10 MG PO
     Route: 048
     Dates: start: 20040201
  2. AVANDIA [Concomitant]
  3. ASPIRIN [Concomitant]
  4. BLOOD PRESSURE MEDICATION [Concomitant]

REACTIONS (8)
  - ASTHENIA [None]
  - CYSTITIS [None]
  - DEHYDRATION [None]
  - EATING DISORDER [None]
  - EYE OPERATION [None]
  - FEELING ABNORMAL [None]
  - MUSCULAR WEAKNESS [None]
  - MYALGIA [None]
